FAERS Safety Report 10255701 (Version 1)
Quarter: 2014Q2

REPORT INFORMATION
  Report Type: Spontaneous
  Country: US (occurrence: None)
  Receive Date: 20140620
  Receipt Date: 20140620
  Transmission Date: 20141212
  Serious: Yes (Hospitalization)
  Sender: FDA-Public Use
  Company Number: 2014AP003415

PATIENT
  Age: 32 Year
  Sex: Female
  Weight: 41.7 kg

DRUGS (1)
  1. FERRIPROX (DEFERIPRONE) TABLET, 500MG [Suspect]
     Indication: THALASSAEMIA
     Route: 048
     Dates: start: 20120116, end: 20140602

REACTIONS (4)
  - Catheter site infection [None]
  - Pneumonia [None]
  - Heart valve incompetence [None]
  - Pyrexia [None]
